FAERS Safety Report 21043443 (Version 1)
Quarter: 2022Q3

REPORT INFORMATION
  Report Type: Spontaneous
  Country: US (occurrence: US)
  Receive Date: 20220705
  Receipt Date: 20220705
  Transmission Date: 20221027
  Serious: No
  Sender: FDA-Public Use
  Company Number: US-SAREPTA THERAPEUTICS INC.-SRP2021-001803

PATIENT
  Age: 21 Year
  Sex: Male
  Weight: 53.515 kg

DRUGS (3)
  1. EXONDYS 51 [Suspect]
     Active Substance: ETEPLIRSEN
     Indication: Duchenne muscular dystrophy
     Dosage: 1700 MILLIGRAM WEEKLY, PIV
     Route: 042
     Dates: start: 20161228, end: 20211014
  2. EXONDYS 51 [Suspect]
     Active Substance: ETEPLIRSEN
     Dosage: 1700 MILLIGRAM WEEKLY, PIV
     Route: 042
     Dates: start: 20211029, end: 20211112
  3. EXONDYS 51 [Suspect]
     Active Substance: ETEPLIRSEN
     Dosage: 1700 MILLIGRAM WEEKLY, PIV
     Route: 042
     Dates: start: 20211118

REACTIONS (2)
  - Intentional dose omission [Unknown]
  - No adverse event [Unknown]

NARRATIVE: CASE EVENT DATE: 20211014
